FAERS Safety Report 20785248 (Version 1)
Quarter: 2022Q2

REPORT INFORMATION
  Report Type: Spontaneous
  Country: US (occurrence: None)
  Receive Date: 20220504
  Receipt Date: 20220504
  Transmission Date: 20220721
  Serious: No
  Sender: FDA-Public Use
  Company Number: None

PATIENT
  Sex: Female

DRUGS (1)
  1. ZEJULA [Suspect]
     Active Substance: NIRAPARIB
     Indication: Neoplasm
     Dosage: FREQUENCY : DAILY;?
     Route: 048

REACTIONS (7)
  - Condition aggravated [None]
  - Dizziness [None]
  - Headache [None]
  - Asthenia [None]
  - Platelet count decreased [None]
  - Photosensitivity reaction [None]
  - Dry skin [None]
